FAERS Safety Report 24098205 (Version 3)
Quarter: 2025Q2

REPORT INFORMATION
  Report Type: Spontaneous
  Country: US (occurrence: US)
  Receive Date: 20240716
  Receipt Date: 20250409
  Transmission Date: 20250717
  Serious: Yes (Other)
  Sender: PFIZER
  Company Number: US-MLMSERVICE-20240705-PI120623-00218-1

PATIENT
  Age: 27 Year
  Sex: Male

DRUGS (54)
  1. METHYLPREDNISOLONE ACETATE [Suspect]
     Active Substance: METHYLPREDNISOLONE ACETATE
     Indication: Metastases to soft tissue
  2. METHYLPREDNISOLONE ACETATE [Suspect]
     Active Substance: METHYLPREDNISOLONE ACETATE
     Indication: Acute myeloid leukaemia
  3. METHYLPREDNISOLONE ACETATE [Suspect]
     Active Substance: METHYLPREDNISOLONE ACETATE
     Indication: Intestinal metastasis
  4. METHYLPREDNISOLONE ACETATE [Suspect]
     Active Substance: METHYLPREDNISOLONE ACETATE
     Indication: Metastases to chest wall
  5. METHYLPREDNISOLONE ACETATE [Suspect]
     Active Substance: METHYLPREDNISOLONE ACETATE
     Indication: Metastases to lymph nodes
  6. METHYLPREDNISOLONE ACETATE [Suspect]
     Active Substance: METHYLPREDNISOLONE ACETATE
     Indication: Diffuse large B-cell lymphoma
  7. METHOTREXATE SODIUM [Suspect]
     Active Substance: METHOTREXATE SODIUM
     Indication: Intestinal metastasis
     Route: 037
  8. METHOTREXATE SODIUM [Suspect]
     Active Substance: METHOTREXATE SODIUM
     Indication: Acute myeloid leukaemia
  9. METHOTREXATE SODIUM [Suspect]
     Active Substance: METHOTREXATE SODIUM
     Indication: Diffuse large B-cell lymphoma
  10. METHOTREXATE SODIUM [Suspect]
     Active Substance: METHOTREXATE SODIUM
     Indication: Metastases to soft tissue
  11. METHOTREXATE SODIUM [Suspect]
     Active Substance: METHOTREXATE SODIUM
     Indication: Metastases to lymph nodes
  12. METHOTREXATE SODIUM [Suspect]
     Active Substance: METHOTREXATE SODIUM
     Indication: Metastases to chest wall
  13. VINCRISTINE SULFATE [Suspect]
     Active Substance: VINCRISTINE SULFATE
     Indication: Metastases to lymph nodes
  14. VINCRISTINE SULFATE [Suspect]
     Active Substance: VINCRISTINE SULFATE
     Indication: Metastases to chest wall
  15. VINCRISTINE SULFATE [Suspect]
     Active Substance: VINCRISTINE SULFATE
     Indication: Intestinal metastasis
  16. VINCRISTINE SULFATE [Suspect]
     Active Substance: VINCRISTINE SULFATE
     Indication: Diffuse large B-cell lymphoma
  17. VINCRISTINE SULFATE [Suspect]
     Active Substance: VINCRISTINE SULFATE
     Indication: Acute myeloid leukaemia
  18. VINCRISTINE SULFATE [Suspect]
     Active Substance: VINCRISTINE SULFATE
     Indication: Metastases to soft tissue
  19. HYDROCORTISONE SODIUM SUCCINATE [Suspect]
     Active Substance: HYDROCORTISONE SODIUM SUCCINATE
     Indication: Metastases to lymph nodes
     Route: 037
  20. HYDROCORTISONE SODIUM SUCCINATE [Suspect]
     Active Substance: HYDROCORTISONE SODIUM SUCCINATE
     Indication: Acute myeloid leukaemia
  21. HYDROCORTISONE SODIUM SUCCINATE [Suspect]
     Active Substance: HYDROCORTISONE SODIUM SUCCINATE
     Indication: Metastases to soft tissue
  22. HYDROCORTISONE SODIUM SUCCINATE [Suspect]
     Active Substance: HYDROCORTISONE SODIUM SUCCINATE
     Indication: Intestinal metastasis
  23. HYDROCORTISONE SODIUM SUCCINATE [Suspect]
     Active Substance: HYDROCORTISONE SODIUM SUCCINATE
     Indication: Metastases to chest wall
  24. HYDROCORTISONE SODIUM SUCCINATE [Suspect]
     Active Substance: HYDROCORTISONE SODIUM SUCCINATE
     Indication: Diffuse large B-cell lymphoma
  25. CYTARABINE [Suspect]
     Active Substance: CYTARABINE
     Indication: Metastases to chest wall
     Route: 037
  26. CYTARABINE [Suspect]
     Active Substance: CYTARABINE
     Indication: Diffuse large B-cell lymphoma
  27. CYTARABINE [Suspect]
     Active Substance: CYTARABINE
     Indication: Intestinal metastasis
  28. CYTARABINE [Suspect]
     Active Substance: CYTARABINE
     Indication: Diffuse large B-cell lymphoma
  29. CYTARABINE [Suspect]
     Active Substance: CYTARABINE
     Indication: Metastases to soft tissue
  30. CYTARABINE [Suspect]
     Active Substance: CYTARABINE
     Indication: Metastases to lymph nodes
  31. AZACITIDINE [Suspect]
     Active Substance: AZACITIDINE
     Indication: Metastases to lymph nodes
  32. AZACITIDINE [Suspect]
     Active Substance: AZACITIDINE
     Indication: Intestinal metastasis
  33. AZACITIDINE [Suspect]
     Active Substance: AZACITIDINE
     Indication: Metastases to soft tissue
  34. AZACITIDINE [Suspect]
     Active Substance: AZACITIDINE
     Indication: Acute myeloid leukaemia
  35. AZACITIDINE [Suspect]
     Active Substance: AZACITIDINE
     Indication: Diffuse large B-cell lymphoma
  36. AZACITIDINE [Suspect]
     Active Substance: AZACITIDINE
     Indication: Metastases to chest wall
  37. VENETOCLAX [Suspect]
     Active Substance: VENETOCLAX
     Indication: Intestinal metastasis
  38. VENETOCLAX [Suspect]
     Active Substance: VENETOCLAX
     Indication: Diffuse large B-cell lymphoma
  39. VENETOCLAX [Suspect]
     Active Substance: VENETOCLAX
     Indication: Metastases to chest wall
  40. VENETOCLAX [Suspect]
     Active Substance: VENETOCLAX
     Indication: Metastases to lymph nodes
  41. VENETOCLAX [Suspect]
     Active Substance: VENETOCLAX
     Indication: Acute myeloid leukaemia
  42. VENETOCLAX [Suspect]
     Active Substance: VENETOCLAX
     Indication: Metastases to soft tissue
  43. OBINUTUZUMAB [Suspect]
     Active Substance: OBINUTUZUMAB
     Indication: Intestinal metastasis
  44. OBINUTUZUMAB [Suspect]
     Active Substance: OBINUTUZUMAB
     Indication: Acute myeloid leukaemia
  45. OBINUTUZUMAB [Suspect]
     Active Substance: OBINUTUZUMAB
     Indication: Metastases to soft tissue
  46. OBINUTUZUMAB [Suspect]
     Active Substance: OBINUTUZUMAB
     Indication: Diffuse large B-cell lymphoma
  47. OBINUTUZUMAB [Suspect]
     Active Substance: OBINUTUZUMAB
     Indication: Metastases to lymph nodes
  48. OBINUTUZUMAB [Suspect]
     Active Substance: OBINUTUZUMAB
     Indication: Metastases to chest wall
  49. CYCLOPHOSPHAMIDE [Suspect]
     Active Substance: CYCLOPHOSPHAMIDE
     Indication: Metastases to chest wall
  50. CYCLOPHOSPHAMIDE [Suspect]
     Active Substance: CYCLOPHOSPHAMIDE
     Indication: Acute myeloid leukaemia
  51. CYCLOPHOSPHAMIDE [Suspect]
     Active Substance: CYCLOPHOSPHAMIDE
     Indication: Metastases to lymph nodes
  52. CYCLOPHOSPHAMIDE [Suspect]
     Active Substance: CYCLOPHOSPHAMIDE
     Indication: Intestinal metastasis
  53. CYCLOPHOSPHAMIDE [Suspect]
     Active Substance: CYCLOPHOSPHAMIDE
     Indication: Diffuse large B-cell lymphoma
  54. CYCLOPHOSPHAMIDE [Suspect]
     Active Substance: CYCLOPHOSPHAMIDE
     Indication: Metastases to soft tissue

REACTIONS (6)
  - Bacterial sepsis [Unknown]
  - Endocarditis bacterial [Unknown]
  - Brain abscess [Unknown]
  - Clostridium difficile colitis [Unknown]
  - Gastric varices [Unknown]
  - Venous thrombosis [Unknown]
